FAERS Safety Report 22337095 (Version 1)
Quarter: 2023Q2

REPORT INFORMATION
  Report Type: Spontaneous
  Country: US (occurrence: None)
  Receive Date: 20230518
  Receipt Date: 20230518
  Transmission Date: 20230721
  Serious: No
  Sender: FDA-Public Use
  Company Number: US-ROCHE-3313769

PATIENT
  Age: 44 Year
  Sex: Female
  Weight: 79.45 kg

DRUGS (2)
  1. ACTEMRA [Suspect]
     Active Substance: TOCILIZUMAB
     Indication: Rheumatoid arthritis
     Dosage: 162ML/0.9ML
     Route: 058
     Dates: start: 20230302
  2. ACTEMRA [Suspect]
     Active Substance: TOCILIZUMAB

REACTIONS (6)
  - Product administration error [Unknown]
  - Wrong technique in product usage process [Unknown]
  - Accidental exposure to product [Unknown]
  - Device issue [Unknown]
  - Device failure [Unknown]
  - Device malfunction [Unknown]

NARRATIVE: CASE EVENT DATE: 20230316
